FAERS Safety Report 9592401 (Version 1)
Quarter: 2013Q4

REPORT INFORMATION
  Report Type: Report from Study
  Country: CA (occurrence: CA)
  Receive Date: 20131004
  Receipt Date: 20131004
  Transmission Date: 20140711
  Serious: Yes (Other)
  Sender: FDA-Public Use
  Company Number: CA-JNJFOC-20130917687

PATIENT
  Sex: Male
  Weight: 63 kg

DRUGS (6)
  1. REMICADE [Suspect]
     Indication: CROHN^S DISEASE
     Dosage: PLUS OR MINUS 16 YEARS AGO
     Route: 042
  2. REMICADE [Suspect]
     Indication: CROHN^S DISEASE
     Route: 042
     Dates: start: 20130926
  3. REMICADE [Suspect]
     Indication: CROHN^S DISEASE
     Route: 042
     Dates: start: 20130827
  4. IMURAN [Concomitant]
     Route: 065
  5. CIPRALEX [Concomitant]
     Route: 065
  6. METHADONE [Concomitant]
     Route: 065

REACTIONS (2)
  - Rectal abscess [Recovering/Resolving]
  - Fistula [Recovering/Resolving]
